FAERS Safety Report 16648823 (Version 1)
Quarter: 2019Q3

REPORT INFORMATION
  Report Type: Spontaneous
  Country: JP (occurrence: JP)
  Receive Date: 20190730
  Receipt Date: 20190730
  Transmission Date: 20191004
  Serious: Yes (Death, Hospitalization)
  Sender: FDA-Public Use
  Company Number: PHHY2019JP175712

PATIENT
  Age: 77 Year
  Sex: Male
  Weight: 55 kg

DRUGS (4)
  1. IPILIMUMAB [Concomitant]
     Active Substance: IPILIMUMAB
     Indication: MALIGNANT MELANOMA
     Route: 065
  2. METHYLPREDNISOLONE. [Suspect]
     Active Substance: METHYLPREDNISOLONE
     Dosage: 60 MG, QD
     Route: 065
  3. METHYLPREDNISOLONE. [Suspect]
     Active Substance: METHYLPREDNISOLONE
     Indication: JAUNDICE
     Dosage: 60 MG, QD (1 MG/KG)
     Route: 065
  4. METHYLPREDNISOLONE. [Suspect]
     Active Substance: METHYLPREDNISOLONE
     Dosage: 500 MG/DL, UNK
     Route: 065

REACTIONS (4)
  - Sepsis [Fatal]
  - General physical health deterioration [Fatal]
  - Product use in unapproved indication [Unknown]
  - Drug resistance [Unknown]
